FAERS Safety Report 25995964 (Version 1)
Quarter: 2025Q4

REPORT INFORMATION
  Report Type: Spontaneous
  Country: CL (occurrence: CL)
  Receive Date: 20251104
  Receipt Date: 20251104
  Transmission Date: 20260118
  Serious: Yes (Other)
  Sender: PFIZER
  Company Number: CL-PFIZER INC-PV202500128594

PATIENT
  Age: 38 Year
  Sex: Female

DRUGS (1)
  1. NURTEC ODT [Suspect]
     Active Substance: RIMEGEPANT SULFATE
     Indication: Prophylaxis
     Dosage: 75 MG
     Route: 048

REACTIONS (2)
  - Syncope [Unknown]
  - Headache [Unknown]

NARRATIVE: CASE EVENT DATE: 20251001
